FAERS Safety Report 5711521-3 (Version None)
Quarter: 2008Q2

REPORT INFORMATION
  Report Type: 
  Country: None (occurrence: None)
  Receive Date: 20080421
  Receipt Date: 20080416
  Transmission Date: 20081010
  Serious: Yes (Death, Hospitalization)
  Sender: FDA-Public Use
  Company Number: US-GENENTECH-256931

PATIENT
  Sex: Female
  Weight: 23.5 kg

DRUGS (6)
  1. SOMATROPIN [Suspect]
     Indication: HYPOPITUITARISM
     Dosage: 0.45 MG, 7/WEEK
     Route: 058
     Dates: start: 20020101
  2. PHENOBARB [Concomitant]
     Indication: DRUG USE FOR UNKNOWN INDICATION
     Dosage: 80 MG, QD
     Route: 048
  3. LEVOXYL [Concomitant]
     Indication: DRUG USE FOR UNKNOWN INDICATION
  4. DDAVP [Concomitant]
     Indication: DRUG USE FOR UNKNOWN INDICATION
  5. CORTEF [Concomitant]
     Indication: DRUG USE FOR UNKNOWN INDICATION
  6. ZANTAC [Concomitant]
     Indication: DRUG USE FOR UNKNOWN INDICATION

REACTIONS (3)
  - CARDIAC ARREST [None]
  - NERVOUS SYSTEM DISORDER [None]
  - RESPIRATORY SYNCYTIAL VIRUS INFECTION [None]
